FAERS Safety Report 5060723-0 (Version None)
Quarter: 2006Q3

REPORT INFORMATION
  Report Type: 
  Country: None (occurrence: None)
  Receive Date: 20060725
  Receipt Date: 20060714
  Transmission Date: 20061208
  Serious: Yes (Hospitalization)
  Sender: FDA-Public Use
  Company Number: US-AVENTIS-200615990US

PATIENT
  Sex: Female
  Weight: 63.63 kg

DRUGS (3)
  1. KETEK [Suspect]
     Indication: SINUSITIS
     Route: 048
     Dates: start: 20060501, end: 20060509
  2. KETEK [Suspect]
     Indication: EAR HAEMORRHAGE
     Route: 048
     Dates: start: 20060501, end: 20060509
  3. SERUMLIPIDREDUCING AGENTS [Concomitant]
     Dosage: DOSE: UNK

REACTIONS (3)
  - ABDOMINAL PAIN UPPER [None]
  - COLITIS ISCHAEMIC [None]
  - RECTAL HAEMORRHAGE [None]
